FAERS Safety Report 4945928-9 (Version None)
Quarter: 2006Q1

REPORT INFORMATION
  Report Type: 
  Country: None (occurrence: None)
  Receive Date: 20060316
  Receipt Date: 20051031
  Transmission Date: 20060701
  Serious: Yes (Life-Threatening)
  Sender: FDA-Public Use
  Company Number: FR-BOEHRINGER INGELHEIM PHARMACEUTICALS, INC.-2005-FF-00776FF

PATIENT
  Sex: Male
  Weight: 65 kg

DRUGS (7)
  1. VIRAMUNE [Suspect]
     Indication: HIV INFECTION
     Route: 048
     Dates: start: 20051020, end: 20051029
  2. VIRAMUNE [Suspect]
  3. VIREAD [Concomitant]
     Indication: HIV INFECTION
     Route: 048
     Dates: start: 20051020, end: 20051029
  4. EPIVIR [Concomitant]
     Indication: HIV INFECTION
     Route: 048
     Dates: start: 20051020, end: 20051029
  5. TOPALGIC [Concomitant]
     Indication: MUSCULOSKELETAL CHEST PAIN
     Route: 048
     Dates: start: 20050905
  6. BI-PROFENID [Concomitant]
     Indication: MUSCULOSKELETAL CHEST PAIN
     Route: 048
     Dates: start: 20050905
  7. OMEPRAZOLE [Concomitant]
     Indication: MUSCULOSKELETAL CHEST PAIN

REACTIONS (2)
  - PYREXIA [None]
  - RASH GENERALISED [None]
